FAERS Safety Report 5731282-1 (Version None)
Quarter: 2008Q2

REPORT INFORMATION
  Report Type: 
  Country: None (occurrence: None)
  Receive Date: 20080505
  Receipt Date: 20080422
  Transmission Date: 20081010
  Serious: Yes (Hospitalization, Other)
  Sender: FDA-Public Use
  Company Number: URSO-2008-042

PATIENT
  Age: 85 Year
  Sex: Female

DRUGS (11)
  1. DELURSAN (URSODEOXYCHOLIC ACID) [Suspect]
     Dates: end: 20080306
  2. PANTOPRAZOLE SODIUM [Suspect]
     Dosage: PO
     Route: 048
     Dates: start: 20080229, end: 20080306
  3. STABLON (TIANEPTINE) TABLETS 12.5 MG [Suspect]
     Dosage: 1 DF, 2 DAYS PO
     Route: 048
     Dates: start: 20080303, end: 20080306
  4. ACTONEL [Suspect]
     Dates: start: 20080110, end: 20080306
  5. CALCIDOSE (CALCIUM CARBONATE) [Suspect]
     Dates: start: 20080110, end: 20080306
  6. POTASSIUM CHLORIDE [Suspect]
     Dates: start: 20070101, end: 20080306
  7. FUROSEMIDE [Suspect]
     Dates: start: 20070101, end: 20080306
  8. SOLUPRED (PREDNISOLONE) [Suspect]
     Dates: start: 20070101, end: 20080306
  9. AMIODARONE HCL [Suspect]
     Dates: start: 20070101, end: 20080306
  10. PREVISCAN (FLUINDIONE) [Concomitant]
  11. DIGOXIN [Concomitant]

REACTIONS (2)
  - HAEMATURIA [None]
  - THROMBOCYTOPENIA [None]
